FAERS Safety Report 15834548 (Version 2)
Quarter: 2019Q1

REPORT INFORMATION
  Report Type: Report from Study
  Country: DE (occurrence: DE)
  Receive Date: 20190116
  Receipt Date: 20190129
  Transmission Date: 20190417
  Serious: Yes (Hospitalization)
  Sender: FDA-Public Use
  Company Number: DE-PFIZER INC-2019020838

PATIENT
  Sex: Female
  Weight: 53 kg

DRUGS (3)
  1. LEFLUNOMIDE MEDAC [Suspect]
     Active Substance: LEFLUNOMIDE
     Indication: RHEUMATOID ARTHRITIS
     Dosage: UNK
     Route: 048
     Dates: start: 201308, end: 201809
  2. RAMIPRIL. [Concomitant]
     Active Substance: RAMIPRIL
     Indication: HYPERTENSION
     Dosage: 2.5 MG, AT LEAST SINCE THE BEGINNING OF 2014, PROBABLY LONGER BUT NOT EXACTLY KNOWN.
     Dates: start: 2014
  3. METHOTREXATE SODIUM. [Suspect]
     Active Substance: METHOTREXATE SODIUM
     Indication: RHEUMATOID ARTHRITIS
     Dosage: UNK
     Route: 048
     Dates: start: 200903, end: 200909

REACTIONS (1)
  - Bladder cancer [Recovered/Resolved with Sequelae]

NARRATIVE: CASE EVENT DATE: 201808
